FAERS Safety Report 9354772 (Version 2)
Quarter: 2013Q3

REPORT INFORMATION
  Report Type: Report from Study
  Country: DE (occurrence: DE)
  Receive Date: 20130619
  Receipt Date: 20130704
  Transmission Date: 20140515
  Serious: Yes (Hospitalization)
  Sender: FDA-Public Use
  Company Number: DE-ROCHE-1222365

PATIENT
  Age: 51 Year
  Sex: Male
  Weight: 58 kg

DRUGS (1)
  1. BEVACIZUMAB [Suspect]
     Indication: COLON CANCER
     Dosage: LAST DOSE PRIOR TO SAE:03/FEB2013
     Route: 042
     Dates: start: 20130102, end: 20130206

REACTIONS (4)
  - Pelvic abscess [Recovered/Resolved with Sequelae]
  - Jaundice [Recovering/Resolving]
  - Arterial rupture [Recovering/Resolving]
  - Hypovolaemic shock [Recovering/Resolving]
